FAERS Safety Report 6613140-3 (Version None)
Quarter: 2010Q1

REPORT INFORMATION
  Report Type: 
  Country: None (occurrence: None)
  Receive Date: 20100225
  Receipt Date: 20100216
  Transmission Date: 20100710
  Serious: No
  Sender: FDA-Public Use
  Company Number: SPI201000059

PATIENT
  Age: 76 Year
  Sex: Male

DRUGS (3)
  1. AMITIZA [Suspect]
     Indication: CONSTIPATION
     Dosage: 8 MCG, BID,ORAL
     Route: 048
     Dates: start: 20091124
  2. WARFARIN SODIUM [Concomitant]
  3. LAXATIVES [Concomitant]

REACTIONS (5)
  - ABDOMINAL PAIN [None]
  - CHEST PAIN [None]
  - DIARRHOEA [None]
  - DRUG INEFFECTIVE [None]
  - MUSCULOSKELETAL PAIN [None]
